FAERS Safety Report 14694058 (Version 1)
Quarter: 2018Q1

REPORT INFORMATION
  Report Type: Spontaneous
  Country: JP (occurrence: JP)
  Receive Date: 20180329
  Receipt Date: 20180329
  Transmission Date: 20180509
  Serious: Yes (Life-Threatening, Other)
  Sender: FDA-Public Use
  Company Number: JP-ASTELLAS-2018US015174

PATIENT
  Age: 8 Decade
  Sex: Male

DRUGS (1)
  1. TARCEVA [Suspect]
     Active Substance: ERLOTINIB HYDROCHLORIDE
     Indication: NON-SMALL CELL LUNG CANCER
     Route: 048
     Dates: start: 201712, end: 201802

REACTIONS (2)
  - Hydrocephalus [Not Recovered/Not Resolved]
  - Intracranial meningioma malignant [Unknown]

NARRATIVE: CASE EVENT DATE: 201802
